FAERS Safety Report 4959828-1 (Version None)
Quarter: 2006Q1

REPORT INFORMATION
  Report Type: 
  Country: None (occurrence: None)
  Receive Date: 20060328
  Receipt Date: 20060314
  Transmission Date: 20060701
  Serious: Yes (Hospitalization)
  Sender: FDA-Public Use
  Company Number: USA-2006-0023874

PATIENT
  Sex: Female

DRUGS (9)
  1. OXYCODONE HCL [Suspect]
     Indication: PAIN
  2. OXYCONTIN [Concomitant]
  3. MORPHINE SULFATE [Concomitant]
  4. STADOL [Concomitant]
  5. PROVENTIL [Concomitant]
  6. PROVENTIL    SOLUTION   (SALBUTAMOL SULFATE) [Concomitant]
  7. TEMAZEPAM [Concomitant]
  8. DEMEROL [Concomitant]
  9. DILAUDID [Concomitant]

REACTIONS (33)
  - ARTHRALGIA [None]
  - ASTHENIA [None]
  - ASTHMA [None]
  - BACK DISORDER [None]
  - BACK PAIN [None]
  - BLOODY DISCHARGE [None]
  - BOWEL SOUNDS ABNORMAL [None]
  - CHRONIC OBSTRUCTIVE PULMONARY DISEASE [None]
  - COGNITIVE DISORDER [None]
  - DECREASED APPETITE [None]
  - DEPRESSION [None]
  - DISCOMFORT [None]
  - DYSSTASIA [None]
  - FRUSTRATION [None]
  - HAEMATOMA [None]
  - HEADACHE [None]
  - HYPERREFLEXIA [None]
  - HYPOAESTHESIA [None]
  - INCISION SITE COMPLICATION [None]
  - INCISION SITE HAEMORRHAGE [None]
  - INSOMNIA [None]
  - JOINT RANGE OF MOTION DECREASED [None]
  - LIPOMA [None]
  - MONOPLEGIA [None]
  - MYALGIA [None]
  - PAIN [None]
  - PAIN IN EXTREMITY [None]
  - PARAESTHESIA [None]
  - POST PROCEDURAL OEDEMA [None]
  - RADICULAR PAIN [None]
  - SKIN LESION [None]
  - SOMNOLENCE [None]
  - URINARY INCONTINENCE [None]
